FAERS Safety Report 21831736 (Version 2)
Quarter: 2023Q1

REPORT INFORMATION
  Report Type: Spontaneous
  Country: US (occurrence: US)
  Receive Date: 20230106
  Receipt Date: 20230118
  Transmission Date: 20230418
  Serious: Yes (Other)
  Sender: FDA-Public Use
  Company Number: US-BAYER-2023A001414

PATIENT
  Age: 82 Year
  Sex: Female

DRUGS (3)
  1. BAYER LOW DOSE [Suspect]
     Active Substance: ASPIRIN
     Indication: Pain
     Dosage: 1 DF, Q4HR
     Route: 048
  2. BAYER LOW DOSE [Suspect]
     Active Substance: ASPIRIN
     Indication: Headache
  3. THYROID [Concomitant]
     Active Substance: LEVOTHYROXINE\LIOTHYRONINE

REACTIONS (2)
  - Gastrointestinal perforation [None]
  - Gastrointestinal pain [None]
